FAERS Safety Report 4646862-4 (Version None)
Quarter: 2005Q2

REPORT INFORMATION
  Report Type: 
  Country: None (occurrence: None)
  Receive Date: 20050331
  Receipt Date: 20050114
  Transmission Date: 20051028
  Serious: No
  Sender: FDA-Public Use
  Company Number: 05P-163-0286723-00

PATIENT
  Age: 71 Year
  Sex: Male
  Weight: 65.7716 kg

DRUGS (8)
  1. HUMIRA [Suspect]
     Indication: RHEUMATOID ARTHRITIS
     Dosage: 40 MG, 1 IN 2 WK, SUBCUTANEOUS
     Route: 058
     Dates: start: 20041004, end: 20041129
  2. ASCORBIC ACID [Concomitant]
  3. METOPROLOL SUCCINATE [Concomitant]
  4. AMLODIPINE BESYLATE [Concomitant]
  5. PREDNISONE [Concomitant]
  6. ASPIRIN [Concomitant]
  7. MULTI-VITAMINS [Concomitant]
  8. CALCIUM GLUCONATE [Concomitant]

REACTIONS (5)
  - COUGH [None]
  - EAR PAIN [None]
  - HEADACHE [None]
  - PULMONARY CONGESTION [None]
  - SINUS CONGESTION [None]
